FAERS Safety Report 4653123-6 (Version None)
Quarter: 2005Q2

REPORT INFORMATION
  Report Type: 
  Country: None (occurrence: None)
  Receive Date: 20050503
  Receipt Date: 20050421
  Transmission Date: 20051028
  Serious: Yes (Hospitalization)
  Sender: FDA-Public Use
  Company Number: 2005-071

PATIENT
  Age: 69 Year
  Sex: Female
  Weight: 80 kg

DRUGS (6)
  1. THEOPHYLLINE LA [Suspect]
     Indication: CHRONIC OBSTRUCTIVE PULMONARY DISEASE
     Dosage: 300MG, BID, PO
     Route: 048
     Dates: start: 20050412, end: 20050420
  2. ALBUTEROL [Concomitant]
  3. ATROVENT PRN [Concomitant]
  4. PHENERGEN W/CODIENE [Concomitant]
  5. AMOXIL [Concomitant]
  6. PREDNISONE TAB [Concomitant]

REACTIONS (8)
  - DRUG LEVEL INCREASED [None]
  - DRUG TOXICITY [None]
  - DYSPNOEA [None]
  - FEELING JITTERY [None]
  - MALAISE [None]
  - NAUSEA [None]
  - PALPITATIONS [None]
  - WHEEZING [None]
